FAERS Safety Report 7963370-3 (Version None)
Quarter: 2011Q4

REPORT INFORMATION
  Report Type: 
  Country: None (occurrence: None)
  Receive Date: 20111122
  Receipt Date: 20110615
  Transmission Date: 20120403
  Serious: No
  Sender: FDA-Public Use
  Company Number: PHHY2011US54669

PATIENT
  Age: 24 Year
  Sex: Female

DRUGS (1)
  1. GILENYA [Suspect]
     Dosage: 0.5 MG, QD, ORAL
     Route: 048
     Dates: start: 20110615

REACTIONS (5)
  - FATIGUE [None]
  - HEADACHE [None]
  - EYE PRURITUS [None]
  - NAUSEA [None]
  - ABDOMINAL DISCOMFORT [None]
